FAERS Safety Report 7041875-X (Version None)
Quarter: 2010Q4

REPORT INFORMATION
  Report Type: 
  Country: None (occurrence: None)
  Receive Date: 20101013
  Receipt Date: 20101004
  Transmission Date: 20110411
  Serious: Yes (Hospitalization)
  Sender: FDA-Public Use
  Company Number: NL-CELGENEUS-114-20785-10090547

PATIENT
  Sex: Female
  Weight: 62 kg

DRUGS (10)
  1. THALIDOMIDE [Suspect]
     Indication: MULTIPLE MYELOMA
     Route: 048
     Dates: start: 20100828, end: 20100904
  2. THALIDOMIDE [Suspect]
     Route: 048
     Dates: start: 20100914, end: 20100921
  3. MELPHALAN HYDROCHLORIDE [Suspect]
     Indication: MULTIPLE MYELOMA
     Route: 048
     Dates: start: 20100828, end: 20100831
  4. PREDNISONE [Suspect]
     Indication: MULTIPLE MYELOMA
     Route: 048
     Dates: start: 20100828, end: 20100831
  5. FLUVOXAMINE [Concomitant]
     Indication: PROPHYLAXIS
     Route: 048
     Dates: start: 20100701, end: 20100904
  6. HALOPERIDOL [Concomitant]
     Indication: ANXIETY
     Route: 048
     Dates: start: 20100801, end: 20100904
  7. HALOPERIDOL [Concomitant]
     Indication: DELIRIUM
  8. DIAZEPAM [Concomitant]
     Indication: ANXIETY
     Route: 048
     Dates: start: 20100801, end: 20100904
  9. FENTANYL [Concomitant]
     Indication: PAIN
     Route: 062
     Dates: start: 20100401, end: 20100904
  10. METOCLOPRAMIDE [Concomitant]
     Indication: NAUSEA
     Route: 048
     Dates: start: 20100601, end: 20100904

REACTIONS (5)
  - ANXIETY [None]
  - DELIRIUM [None]
  - PNEUMONIA [None]
  - PYREXIA [None]
  - SOMNOLENCE [None]
